FAERS Safety Report 8538443-7 (Version None)
Quarter: 2012Q3

REPORT INFORMATION
  Report Type: 
  Country: None (occurrence: None)
  Receive Date: 20120712
  Receipt Date: 20120703
  Transmission Date: 20120928
  Serious: Yes (Other)
  Sender: FDA-Public Use
  Company Number: AUR-APL-2012-02920

PATIENT
  Age: 36 Year
  Sex: Female

DRUGS (5)
  1. GLICLAZIDE (GLICLAZIDE) [Suspect]
     Indication: TYPE 2 DIABETES MELLITUS
     Dosage: ORAL
     Route: 048
  2. INSULIN [Suspect]
     Indication: TYPE 2 DIABETES MELLITUS
     Dosage: UNK
  3. EXENATIDE (EXENATIDE) [Suspect]
     Indication: TYPE 2 DIABETES MELLITUS
     Dosage: 10 MCG (5 MCG, 2 IN 1 D), UNK
  4. ROSIGLITAZONE [Suspect]
     Indication: TYPE 2 DIABETES MELLITUS
     Dosage: ORAL
     Route: 048
  5. METFFORMIN HYDROCHLORIDE [Suspect]
     Indication: TYPE 2 DIABETES MELLITUS
     Dosage: ORAL
     Route: 048

REACTIONS (8)
  - NAUSEA [None]
  - HYPERTENSION [None]
  - OBESITY [None]
  - APHASIA [None]
  - FATIGUE [None]
  - METABOLIC DISORDER [None]
  - HEMIPARESIS [None]
  - HYPERPHAGIA [None]
